FAERS Safety Report 4616013-0 (Version None)
Quarter: 2005Q1

REPORT INFORMATION
  Report Type: 
  Country: None (occurrence: None)
  Receive Date: 20050318
  Receipt Date: 20050309
  Transmission Date: 20050727
  Serious: Yes (Hospitalization, Other)
  Sender: FDA-Public Use
  Company Number: 2004-12-1121

PATIENT
  Age: 24 Year
  Sex: Male
  Weight: 94 kg

DRUGS (19)
  1. TEMODAL [Suspect]
     Indication: ASTROCYTOMA
     Dosage: 315- MG* ORAL
     Route: 048
     Dates: start: 20040101, end: 20040101
  2. TEMODAL [Suspect]
     Indication: NEOPLASM PROGRESSION
     Dosage: 315- MG* ORAL
     Route: 048
     Dates: start: 20040101, end: 20040101
  3. TEMODAL [Suspect]
     Indication: ASTROCYTOMA
     Dosage: 315- MG* ORAL
     Route: 048
     Dates: start: 20040614, end: 20040618
  4. TEMODAL [Suspect]
     Indication: NEOPLASM PROGRESSION
     Dosage: 315- MG* ORAL
     Route: 048
     Dates: start: 20040614, end: 20040618
  5. TEMODAL [Suspect]
     Indication: ASTROCYTOMA
     Dosage: 315- MG* ORAL
     Route: 048
     Dates: start: 20040712, end: 20040716
  6. TEMODAL [Suspect]
     Indication: NEOPLASM PROGRESSION
     Dosage: 315- MG* ORAL
     Route: 048
     Dates: start: 20040712, end: 20040716
  7. TEMODAL [Suspect]
     Indication: ASTROCYTOMA
     Dosage: 315- MG* ORAL
     Route: 048
     Dates: start: 20040906, end: 20040910
  8. TEMODAL [Suspect]
     Indication: NEOPLASM PROGRESSION
     Dosage: 315- MG* ORAL
     Route: 048
     Dates: start: 20040906, end: 20040910
  9. TEMODAL [Suspect]
     Indication: ASTROCYTOMA
     Dosage: 315- MG* ORAL
     Route: 048
     Dates: start: 20041030, end: 20041103
  10. TEMODAL [Suspect]
     Indication: NEOPLASM PROGRESSION
     Dosage: 315- MG* ORAL
     Route: 048
     Dates: start: 20041030, end: 20041103
  11. TEMODAL [Suspect]
     Indication: ASTROCYTOMA
     Dosage: 315- MG* ORAL
     Route: 048
     Dates: start: 20041201, end: 20041201
  12. TEMODAL [Suspect]
     Indication: NEOPLASM PROGRESSION
     Dosage: 315- MG* ORAL
     Route: 048
     Dates: start: 20041201, end: 20041201
  13. DEXAMETHASONE [Concomitant]
  14. PANTOPRAZOLE SODIUM [Concomitant]
  15. GRAVOL TAB [Concomitant]
  16. TYLENOL W/ CODEINE NO. 3 [Concomitant]
  17. ALDACTONE [Concomitant]
  18. SEPTRA [Concomitant]
  19. TOPAMAX [Concomitant]

REACTIONS (9)
  - ALANINE AMINOTRANSFERASE INCREASED [None]
  - BLOOD ALKALINE PHOSPHATASE INCREASED [None]
  - LIVER DISORDER [None]
  - LIVER FUNCTION TEST ABNORMAL [None]
  - NAUSEA [None]
  - PULMONARY EMBOLISM [None]
  - SHUNT OCCLUSION [None]
  - VENTRICULOPERITONEAL SHUNT MALFUNCTION [None]
  - VOMITING [None]
